FAERS Safety Report 8936088 (Version 1)
Quarter: 2012Q4

REPORT INFORMATION
  Report Type: 
  Country: US (occurrence: US)
  Receive Date: 20121130
  Receipt Date: 20121130
  Transmission Date: 20130627
  Serious: No
  Sender: FDA-Public Use
  Company Number: US-ABBOTT-12P-163-0979900-00

PATIENT
  Sex: Male
  Weight: 109.87 kg

DRUGS (9)
  1. ANDROGEL [Suspect]
     Indication: BLOOD TESTOSTERONE DECREASED
  2. TRAZODONE [Concomitant]
     Indication: INSOMNIA
  3. KLONOPIN [Concomitant]
     Indication: INSOMNIA
  4. NORTRIPTYLINE [Concomitant]
     Indication: ANXIETY
  5. CLINDEX [Concomitant]
     Indication: ANXIETY
     Dosage: 2.5/5 mg
  6. ZANTAC [Concomitant]
     Indication: GASTROOESOPHAGEAL REFLUX DISEASE
  7. MVI [Concomitant]
     Indication: PRODUCT USED FOR UNKNOWN INDICATION
  8. FISH OIL [Concomitant]
     Indication: PRODUCT USED FOR UNKNOWN INDICATION
  9. VIAGRA [Concomitant]
     Indication: PRODUCT USED FOR UNKNOWN INDICATION

REACTIONS (1)
  - Application site pain [Not Recovered/Not Resolved]
